FAERS Safety Report 7714011 (Version 2)
Quarter: 2013Q1

REPORT INFORMATION
  Report Type: Spontaneous
  Country: US (occurrence: US)
  Receive Date: 20101216
  Receipt Date: 20130218
  Transmission Date: 20140127
  Serious: Yes (Other)
  Sender: FDA-Public Use
  Company Number: PHEH2010US01852

PATIENT
  Sex: Female

DRUGS (16)
  1. VIVELLE [Suspect]
     Indication: MENOPAUSE
     Dosage: UNK UKN, UNK
  2. VIVELLE [Suspect]
     Indication: CHILLS
  3. VIVELLE DOT [Suspect]
     Indication: MENOPAUSE
     Dosage: 0.05 MG
     Route: 062
  4. VIVELLE DOT [Suspect]
     Indication: CHILLS
     Dosage: 0.1 MG AND 0.075 MG
     Route: 062
  5. VIVELLE DOT [Suspect]
     Dosage: 0.1 MG AND 0.5 MG
     Route: 062
  6. VIVELLE DOT [Suspect]
     Dosage: 0.1 MG
     Route: 062
  7. VIVELLE DOT [Suspect]
     Dosage: 0.75 UNK, TWICE A WEK
  8. ESTRADERM TTS [Suspect]
     Dosage: UNK UKN, UNK
  9. PRIMERA [Suspect]
     Dosage: UNK UKN, UNK
  10. SYNTHROID [Suspect]
     Dosage: UNK UKN, UNK
  11. ASPIRIN [Suspect]
     Dosage: UNK UKN, UNK
  12. CLIMARA [Suspect]
     Dosage: UNK UKN, UNK
  13. HOMEOPATHIC PREPARATIONS [Concomitant]
     Dosage: UNK UKN, UNK
  14. MORPHINE [Suspect]
     Dosage: UNK UKN, UNK
  15. XANAX [Concomitant]
     Dosage: UNK UKN, UNK
  16. LEVOXYL [Suspect]
     Dosage: UNK UKN, UNK

REACTIONS (19)
  - Hepatic neoplasm [Unknown]
  - Skin exfoliation [Unknown]
  - Somnolence [Unknown]
  - Anger [Unknown]
  - Bruxism [Unknown]
  - Tremor [Unknown]
  - Chills [Unknown]
  - Hunger [Unknown]
  - Blood oestrogen decreased [Unknown]
  - Fatigue [Unknown]
  - Expired drug administered [Unknown]
  - Anxiety [Unknown]
  - Hot flush [Unknown]
  - Feeling hot [Unknown]
  - Nasopharyngitis [Unknown]
  - Drug ineffective [Unknown]
  - Thyroid disorder [Unknown]
  - Palpitations [Unknown]
  - Ligament sprain [Unknown]
